FAERS Safety Report 6889793-1 (Version None)
Quarter: 2010Q3

REPORT INFORMATION
  Report Type: 
  Country: None (occurrence: None)
  Receive Date: 20100730
  Receipt Date: 20080506
  Transmission Date: 20110219
  Serious: No
  Sender: FDA-Public Use
  Company Number: US-PFIZER INC-2008039579

PATIENT
  Sex: Female
  Weight: 48.99 kg

DRUGS (7)
  1. LIPITOR [Suspect]
     Indication: BLOOD TRIGLYCERIDES INCREASED
     Dates: start: 20070108, end: 20070122
  2. TRICOR [Suspect]
     Indication: BLOOD TRIGLYCERIDES INCREASED
     Route: 048
     Dates: start: 20070108, end: 20070122
  3. RABEPRAZOLE SODIUM [Concomitant]
     Indication: GASTROOESOPHAGEAL REFLUX DISEASE
     Route: 048
  4. LEVOTHYROXINE SODIUM [Concomitant]
     Indication: HYPOTHYROIDISM
     Route: 048
  5. ANTIHYPERTENSIVES [Concomitant]
     Indication: HYPERTENSION
     Route: 048
  6. HYDROCHLOROTHIAZIDE [Concomitant]
     Indication: HYPERTENSION
     Route: 048
  7. ALENDRONATE SODIUM [Concomitant]
     Indication: BONE DISORDER
     Route: 048

REACTIONS (2)
  - ASTHENIA [None]
  - MYALGIA [None]
